FAERS Safety Report 13523981 (Version 2)
Quarter: 2017Q3

REPORT INFORMATION
  Report Type: Spontaneous
  Country: US (occurrence: US)
  Receive Date: 20170508
  Receipt Date: 20170814
  Transmission Date: 20171127
  Serious: No
  Sender: FDA-Public Use
  Company Number: US-VIFOR (INTERNATIONAL) INC.-VIT-2016-08350

PATIENT
  Sex: Female

DRUGS (7)
  1. VESICARE [Concomitant]
     Active Substance: SOLIFENACIN SUCCINATE
     Route: 048
     Dates: start: 20150513
  2. AMLODIPINE [Concomitant]
     Active Substance: AMLODIPINE BESYLATE
     Route: 048
     Dates: start: 20131126
  3. VELTASSA [Suspect]
     Active Substance: PATIROMER
     Indication: HYPERKALAEMIA
     Route: 048
     Dates: start: 20161009
  4. COLECALCIFEROL [Concomitant]
     Active Substance: CHOLECALCIFEROL
     Dosage: 1000 UNITS
     Route: 048
     Dates: start: 20140129
  5. NEBIVOLOL. [Concomitant]
     Active Substance: NEBIVOLOL
     Route: 048
     Dates: start: 20131126
  6. ASA [Concomitant]
     Active Substance: ASPIRIN
     Route: 048
     Dates: start: 20131126
  7. SIMVASTATIN/EZETIMIBA [Concomitant]
     Route: 048
     Dates: start: 20131126

REACTIONS (8)
  - Feeling cold [Recovered/Resolved]
  - Muscle spasms [Unknown]
  - Onychoclasis [Not Recovered/Not Resolved]
  - Blood magnesium decreased [Recovered/Resolved]
  - Weight decreased [Unknown]
  - Blood creatine increased [Recovering/Resolving]
  - Pain in extremity [Not Recovered/Not Resolved]
  - Therapeutic response unexpected [Recovered/Resolved]

NARRATIVE: CASE EVENT DATE: 2016
